FAERS Safety Report 13037049 (Version 2)
Quarter: 2016Q4

REPORT INFORMATION
  Report Type: Spontaneous
  Country: CH (occurrence: CH)
  Receive Date: 20161216
  Receipt Date: 20161221
  Transmission Date: 20170207
  Serious: Yes (Other)
  Sender: FDA-Public Use
  Company Number: CH-B.I. PHARMACEUTICALS,INC./RIDGEFIELD-2016-BI-085043

PATIENT
  Age: 80 Year
  Sex: Male

DRUGS (3)
  1. TORASEMID [Concomitant]
     Active Substance: TORSEMIDE
     Indication: HYPERTENSION
  2. MADOPAR [Concomitant]
     Active Substance: BENSERAZIDE HYDROCHLORIDE\LEVODOPA
     Indication: PARKINSON^S DISEASE
  3. PRAXBIND [Suspect]
     Active Substance: IDARUCIZUMAB
     Indication: SURGERY
     Route: 065

REACTIONS (3)
  - Off label use [Unknown]
  - Ischaemic stroke [Recovered/Resolved with Sequelae]
  - Haemorrhagic infarction [Recovered/Resolved]

NARRATIVE: CASE EVENT DATE: 20160919
